FAERS Safety Report 12613717 (Version 2)
Quarter: 2016Q3

REPORT INFORMATION
  Report Type: Spontaneous
  Country: BR (occurrence: BR)
  Receive Date: 20160802
  Receipt Date: 20160818
  Transmission Date: 20161109
  Serious: Yes (Hospitalization, Other)
  Sender: FDA-Public Use
  Company Number: BR-NOVOPROD-503037

PATIENT
  Age: 40 Year
  Sex: Female

DRUGS (2)
  1. NOVOLIN R [Suspect]
     Active Substance: INSULIN HUMAN
     Indication: PRODUCT USED FOR UNKNOWN INDICATION
     Dosage: 60 U, QD(20 U THRICE)
     Route: 058
  2. NOVOLIN N [Suspect]
     Active Substance: INSULIN HUMAN
     Indication: PRODUCT USED FOR UNKNOWN INDICATION
     Dosage: 60 U, QD(20 U THRICE)
     Route: 058

REACTIONS (7)
  - Retinal detachment [Unknown]
  - Drug ineffective [Unknown]
  - Coma [Unknown]
  - Blood glucose increased [Unknown]
  - Renal failure [Recovering/Resolving]
  - Blood glucose fluctuation [Unknown]
  - Furuncle [Unknown]

NARRATIVE: CASE EVENT DATE: 20160511
